FAERS Safety Report 23709175 (Version 1)
Quarter: 2024Q2

REPORT INFORMATION
  Report Type: Spontaneous
  Country: US (occurrence: US)
  Receive Date: 20240404
  Receipt Date: 20240404
  Transmission Date: 20240715
  Serious: No
  Sender: FDA-Public Use
  Company Number: US-BIOMARINAP-US-2024-156856

PATIENT

DRUGS (1)
  1. VIMIZIM [Suspect]
     Active Substance: ELOSULFASE ALFA
     Indication: Mucopolysaccharidosis IV
     Dosage: 130 MILLIGRAM, QW
     Route: 042
     Dates: start: 20140428

REACTIONS (3)
  - Nasopharyngitis [Recovering/Resolving]
  - Nasal congestion [Recovering/Resolving]
  - Dry mouth [Recovering/Resolving]

NARRATIVE: CASE EVENT DATE: 20240326
